FAERS Safety Report 8839382 (Version 1)
Quarter: 2012Q4

REPORT INFORMATION
  Report Type: Spontaneous
  Country: US (occurrence: None)
  Receive Date: 20121012
  Receipt Date: 20121012
  Transmission Date: 20130627
  Serious: Yes (Other)
  Sender: FDA-Public Use
  Company Number: None

PATIENT
  Age: 42 Year
  Sex: Female
  Weight: 54.1 kg

DRUGS (1)
  1. VELCADE [Suspect]
     Dosage: 1.9mg every 3 days, IV
     Route: 042
     Dates: start: 20110930, end: 20111010

REACTIONS (4)
  - Headache [None]
  - Photosensitivity reaction [None]
  - Grand mal convulsion [None]
  - Palmar-plantar erythrodysaesthesia syndrome [None]
